FAERS Safety Report 23428365 (Version 2)
Quarter: 2024Q1

REPORT INFORMATION
  Report Type: Spontaneous
  Country: SG (occurrence: None)
  Receive Date: 20240122
  Receipt Date: 20240201
  Transmission Date: 20240410
  Serious: No
  Sender: FDA-Public Use
  Company Number: SG-ROCHE-3492947

PATIENT
  Sex: Female
  Weight: 45 kg

DRUGS (1)
  1. PERJETA [Suspect]
     Active Substance: PERTUZUMAB
     Indication: Breast cancer
     Route: 042

REACTIONS (5)
  - Surgery [Unknown]
  - Lip swelling [Unknown]
  - Chapped lips [Unknown]
  - Gingival bleeding [Unknown]
  - Mouth ulceration [Unknown]
